FAERS Safety Report 5704917-7 (Version None)
Quarter: 2008Q2

REPORT INFORMATION
  Report Type: 
  Country: None (occurrence: None)
  Receive Date: 20080414
  Receipt Date: 20080403
  Transmission Date: 20081010
  Serious: Yes (Other)
  Sender: FDA-Public Use
  Company Number: US-PFIZER INC-2008029738

PATIENT
  Sex: Female
  Weight: 65.8 kg

DRUGS (2)
  1. CHANTIX [Suspect]
     Indication: SMOKING CESSATION THERAPY
     Dates: start: 20080119, end: 20080321
  2. HYDROCHLOROTHIAZIDE [Concomitant]
     Indication: HYPERTENSION

REACTIONS (8)
  - ABASIA [None]
  - ABDOMINAL DISTENSION [None]
  - BACK PAIN [None]
  - BLOOD PRESSURE DECREASED [None]
  - CONSTIPATION [None]
  - GROIN PAIN [None]
  - HEART RATE DECREASED [None]
  - INSOMNIA [None]
